FAERS Safety Report 18883642 (Version 2)
Quarter: 2021Q4

REPORT INFORMATION
  Report Type: Spontaneous
  Country: US (occurrence: US)
  Receive Date: 20210211
  Receipt Date: 20211229
  Transmission Date: 20220303
  Serious: Yes (Life-Threatening, Hospitalization)
  Sender: FDA-Public Use
  Company Number: US-TEVA-2021-US-1877188

PATIENT
  Sex: Male

DRUGS (3)
  1. ALLOPURINOL [Suspect]
     Active Substance: ALLOPURINOL
     Indication: Hyperuricaemia
     Dosage: 750 MILLIGRAM DAILY;
     Route: 065
  2. ALLOPURINOL [Suspect]
     Active Substance: ALLOPURINOL
     Dosage: 450 MILLIGRAM DAILY;
     Route: 065
  3. POTASSIUM CITRATE [Concomitant]
     Active Substance: POTASSIUM CITRATE
     Indication: Hypoxanthine-guanine phosphoribosyl transferase deficiency
     Dosage: 10 MILLIEQUIVALENTS DAILY;
     Route: 065

REACTIONS (5)
  - Calculus urinary [Unknown]
  - Metabolic disorder [Unknown]
  - Sepsis [Unknown]
  - Bacterial pyelonephritis [Unknown]
  - Urinary tract infection [Unknown]
